FAERS Safety Report 5161881-X (Version None)
Quarter: 2006Q4

REPORT INFORMATION
  Report Type: 
  Country: None (occurrence: None)
  Receive Date: 20061130
  Receipt Date: 20061016
  Transmission Date: 20070319
  Serious: No
  Sender: FDA-Public Use
  Company Number: US-GLAXOSMITHKLINE-A0623709A

PATIENT
  Age: 53 Year
  Sex: Female

DRUGS (2)
  1. WELLBUTRIN XL [Suspect]
     Indication: DEPRESSION
     Dosage: 150MG PER DAY
     Route: 048
     Dates: start: 20060923, end: 20060926
  2. THYROID TAB [Concomitant]
     Dosage: 60MG PER DAY
     Route: 048

REACTIONS (3)
  - HEART RATE INCREASED [None]
  - OFF LABEL USE [None]
  - PSYCHOMOTOR HYPERACTIVITY [None]
